FAERS Safety Report 13770491 (Version 6)
Quarter: 2019Q2

REPORT INFORMATION
  Report Type: Report from Study
  Country: None (occurrence: NL)
  Receive Date: 20170719
  Receipt Date: 20190522
  Transmission Date: 20190711
  Serious: Yes (Hospitalization)
  Sender: FDA-Public Use
  Company Number: NL-ABBVIE-17P-114-1948344-00

PATIENT
  Sex: Male
  Weight: 72.6 kg

DRUGS (8)
  1. DUODOPA [Suspect]
     Active Substance: CARBIDOPA\LEVODOPA
     Dosage: MD: 10.5, CD: 3, ED: 1.5, CND: 2.5, END: 1.0
     Route: 050
  2. DUODOPA [Suspect]
     Active Substance: CARBIDOPA\LEVODOPA
     Dosage: MD 10.5
     Route: 050
  3. BISACODYL. [Concomitant]
     Active Substance: BISACODYL
     Indication: PRODUCT USED FOR UNKNOWN INDICATION
  4. DUODOPA [Suspect]
     Active Substance: CARBIDOPA\LEVODOPA
     Indication: PARKINSON^S DISEASE
     Dosage: MD: 10.5, CD: 3.6, ED: 1.5, CND: 2.5, END: 1.0
     Route: 050
     Dates: start: 20151102
  5. QUETIAPINE. [Concomitant]
     Active Substance: QUETIAPINE
     Indication: PRODUCT USED FOR UNKNOWN INDICATION
  6. DUODOPA [Suspect]
     Active Substance: CARBIDOPA\LEVODOPA
     Dosage: MD: 10,5 CD: 3,4 ED: 1.5
     Route: 050
  7. LACTULOSE. [Suspect]
     Active Substance: LACTULOSE
     Indication: PRODUCT USED FOR UNKNOWN INDICATION
     Route: 065
  8. RIVOTRIL [Concomitant]
     Active Substance: CLONAZEPAM
     Indication: PRODUCT USED FOR UNKNOWN INDICATION

REACTIONS (33)
  - Defaecation urgency [Not Recovered/Not Resolved]
  - Decreased appetite [Unknown]
  - Medical device site discolouration [Unknown]
  - Fatigue [Not Recovered/Not Resolved]
  - Dysphonia [Not Recovered/Not Resolved]
  - Weight decreased [Recovered/Resolved]
  - Paraesthesia [Not Recovered/Not Resolved]
  - Parkinson^s disease [Not Recovered/Not Resolved]
  - Medical device site dryness [Unknown]
  - Dysphagia [Not Recovered/Not Resolved]
  - Fluid intake reduced [Not Recovered/Not Resolved]
  - Gait disturbance [Recovering/Resolving]
  - Nasopharyngitis [Unknown]
  - Loss of personal independence in daily activities [Not Recovered/Not Resolved]
  - Malaise [Not Recovered/Not Resolved]
  - Fibroma [Not Recovered/Not Resolved]
  - Dementia with Lewy bodies [Not Recovered/Not Resolved]
  - Restlessness [Recovered/Resolved]
  - Weight fluctuation [Not Recovered/Not Resolved]
  - Distractibility [Not Recovered/Not Resolved]
  - Hallucination [Not Recovered/Not Resolved]
  - Memory impairment [Not Recovered/Not Resolved]
  - Staring [Not Recovered/Not Resolved]
  - Grip strength decreased [Not Recovered/Not Resolved]
  - Dyschezia [Not Recovered/Not Resolved]
  - Syncope [Recovered/Resolved]
  - Confusional state [Not Recovered/Not Resolved]
  - Abnormal faeces [Recovering/Resolving]
  - Dysstasia [Not Recovered/Not Resolved]
  - Blood pressure fluctuation [Recovered/Resolved]
  - Constipation [Recovered/Resolved]
  - Stoma site discharge [Recovered/Resolved]
  - Dizziness [Recovered/Resolved]
